FAERS Safety Report 25966422 (Version 1)
Quarter: 2025Q4

REPORT INFORMATION
  Report Type: Spontaneous
  Country: US (occurrence: US)
  Receive Date: 20251028
  Receipt Date: 20251028
  Transmission Date: 20260117
  Serious: Yes (Other)
  Sender: PADAGIS
  Company Number: US-PADAGIS-2025PAD01325

PATIENT

DRUGS (3)
  1. TRIAMCINOLONE ACETONIDE [Suspect]
     Active Substance: TRIAMCINOLONE ACETONIDE
     Indication: Acute graft versus host disease in skin
     Dosage: ON THE BODY
     Route: 061
  2. HYDROCORTISONE [Suspect]
     Active Substance: HYDROCORTISONE
     Indication: Acute graft versus host disease in skin
     Dosage: TO THE FACE
     Route: 061
  3. TACROLIMUS [Concomitant]
     Active Substance: TACROLIMUS
     Indication: Prophylaxis against graft versus host disease
     Dosage: FROM DAY +5 AFTER HCT (WITH PLAN TO START TAPER AT DAY +180 IN THE ABSENCE OF GVHD)
     Route: 065

REACTIONS (1)
  - Drug ineffective [Unknown]
